FAERS Safety Report 6420112-0 (Version None)
Quarter: 2009Q4

REPORT INFORMATION
  Report Type: 
  Country: None (occurrence: None)
  Receive Date: 20091027
  Receipt Date: 20091014
  Transmission Date: 20100525
  Serious: Yes (Hospitalization)
  Sender: FDA-Public Use
  Company Number: 8053315

PATIENT
  Sex: Female
  Weight: 68 kg

DRUGS (8)
  1. CERTOLIZUMAB PEGOL [Suspect]
     Indication: CROHN'S DISEASE
     Dosage: 400 MG 1 2W SC
     Route: 058
     Dates: start: 20090528, end: 20090101
  2. CERTOLIZUMAB PEGOL [Suspect]
     Indication: CROHN'S DISEASE
     Dosage: 400 MG M SC
     Route: 058
     Dates: start: 20090101
  3. SULFOLAZINE [Concomitant]
  4. AZATHIOPRINE [Concomitant]
  5. ENCORTON [Concomitant]
  6. ACIDUM FOLICUM [Concomitant]
  7. NOLICIN [Concomitant]
  8. NETROMYCIN [Concomitant]

REACTIONS (5)
  - BLADDER DISORDER [None]
  - DISEASE RECURRENCE [None]
  - HAEMATOCRIT DECREASED [None]
  - HAEMOGLOBIN DECREASED [None]
  - URINARY TRACT INFECTION [None]
